FAERS Safety Report 9484045 (Version 1)
Quarter: 2013Q3

REPORT INFORMATION
  Report Type: Spontaneous
  Country: CA (occurrence: CA)
  Receive Date: 20130828
  Receipt Date: 20130828
  Transmission Date: 20140515
  Serious: Yes (Death, Hospitalization)
  Sender: FDA-Public Use
  Company Number: CA-AMGEN-KDL370428

PATIENT
  Age: 45 Year
  Sex: Male

DRUGS (1)
  1. ENBREL [Suspect]
     Indication: RHEUMATOID ARTHRITIS
     Dosage: UNK UNK, 2 TIMES/WK
     Route: 065
     Dates: start: 20090223, end: 20090820

REACTIONS (7)
  - Death [Fatal]
  - Coma [Fatal]
  - General physical health deterioration [Unknown]
  - Septic shock [Unknown]
  - Device related infection [Unknown]
  - Bacterial infection [Unknown]
  - Dialysis [Unknown]
